FAERS Safety Report 9953793 (Version 1)
Quarter: 2014Q1

REPORT INFORMATION
  Report Type: Spontaneous
  Country: US (occurrence: US)
  Receive Date: 20140304
  Receipt Date: 20140304
  Transmission Date: 20141002
  Serious: No
  Sender: FDA-Public Use
  Company Number: US-AMGEN-USASP2013078257

PATIENT
  Age: 71 Year
  Sex: Female
  Weight: 62.1 kg

DRUGS (1)
  1. ENBREL [Suspect]
     Indication: PRODUCT USED FOR UNKNOWN INDICATION
     Dosage: 50 MG, QWK
     Route: 058
     Dates: start: 200611

REACTIONS (3)
  - Cough [Unknown]
  - Nasal congestion [Unknown]
  - Respiratory tract congestion [Unknown]
